FAERS Safety Report 24014160 (Version 1)
Quarter: 2024Q2

REPORT INFORMATION
  Report Type: Report from Study
  Country: US (occurrence: US)
  Receive Date: 20240626
  Receipt Date: 20240626
  Transmission Date: 20240716
  Serious: Yes (Death, Other)
  Sender: FDA-Public Use
  Company Number: US-MYLANLABS-2024M1057316

PATIENT
  Sex: Female

DRUGS (17)
  1. DEXAMETHASONE [Suspect]
     Active Substance: DEXAMETHASONE
     Indication: B-cell type acute leukaemia
     Dosage: UNK; DOSE NOT STATED
     Route: 065
  2. DEXAMETHASONE [Suspect]
     Active Substance: DEXAMETHASONE
     Dosage: UNK; AS A PART OF MINI-HYPER-CVAD CHEMOTHERAPY REGIMEN
     Route: 065
  3. METHOTREXATE [Suspect]
     Active Substance: METHOTREXATE
     Indication: B-cell type acute leukaemia
     Dosage: UNK; HIGH-DOSE
     Route: 048
  4. METHOTREXATE [Suspect]
     Active Substance: METHOTREXATE
     Dosage: UNK; AS A PART OF MINI-HYPER-CVAD CHEMOTHERAPY REGIMEN
     Route: 065
  5. DOXORUBICIN [Suspect]
     Active Substance: DOXORUBICIN
     Indication: B-cell type acute leukaemia
     Dosage: UNK; AS A PART OF MINI-HYPER-CVAD CHEMOTHERAPY REGIMEN
     Route: 065
  6. CYTARABINE [Suspect]
     Active Substance: CYTARABINE
     Indication: B-cell type acute leukaemia
     Dosage: UNK; AS A PART OF MINI-HYPER-CVAD CHEMOTHERAPY REGIMEN
     Route: 065
  7. VINCRISTINE [Suspect]
     Active Substance: VINCRISTINE
     Indication: B-cell type acute leukaemia
     Dosage: UNK; INITIAL DOSE NOT STATED
     Route: 065
  8. VINCRISTINE [Suspect]
     Active Substance: VINCRISTINE
     Dosage: UNK; AS A PART OF MINI-HYPER-CVAD CHEMOTHERAPY REGIMEN
     Route: 065
  9. PEG/L-ASPARAGINASE [Suspect]
     Active Substance: PEGASPARGASE
     Indication: B-cell type acute leukaemia
     Dosage: UNK; DOSE NOT STATED
     Route: 065
  10. CYCLOPHOSPHAMIDE [Suspect]
     Active Substance: CYCLOPHOSPHAMIDE
     Indication: B-cell type acute leukaemia
     Dosage: 500 MILLIGRAM/SQ. METER
     Route: 065
  11. CYCLOPHOSPHAMIDE [Suspect]
     Active Substance: CYCLOPHOSPHAMIDE
     Dosage: 900 MILLIGRAM/SQ. METER
     Route: 065
  12. CYCLOPHOSPHAMIDE [Suspect]
     Active Substance: CYCLOPHOSPHAMIDE
     Dosage: UNK; AS A PART OF MINI-HYPER-CVAD CHEMOTHERAPY REGIMEN
     Route: 065
  13. TISAGENLECLEUCEL [Suspect]
     Active Substance: TISAGENLECLEUCEL
     Indication: B-cell type acute leukaemia
     Dosage: UNK; DOSE NOT STATED (INFUSION)
     Route: 065
  14. TISAGENLECLEUCEL [Suspect]
     Active Substance: TISAGENLECLEUCEL
     Dosage: UNK; DOSE NOT STATED; REINFUSION
     Route: 065
  15. INOTUZUMAB OZOGAMICIN [Suspect]
     Active Substance: INOTUZUMAB OZOGAMICIN
     Indication: B-cell type acute leukaemia
     Dosage: UNK, CYCLE
     Route: 065
  16. MERCAPTOPURINE [Concomitant]
     Active Substance: MERCAPTOPURINE
     Indication: B-cell type acute leukaemia
     Dosage: UNK
     Route: 048
  17. FLUDARABINE [Concomitant]
     Active Substance: FLUDARABINE PHOSPHATE
     Indication: B-cell type acute leukaemia
     Dosage: 30 MILLIGRAM/SQ. METER
     Route: 065

REACTIONS (5)
  - Drug ineffective [Fatal]
  - Bacillus infection [Unknown]
  - Meningitis bacterial [Unknown]
  - Escherichia bacteraemia [Unknown]
  - Alpha haemolytic streptococcal infection [Unknown]
